FAERS Safety Report 12172687 (Version 3)
Quarter: 2019Q1

REPORT INFORMATION
  Report Type: Spontaneous
  Country: FR (occurrence: FR)
  Receive Date: 20160311
  Receipt Date: 20190220
  Transmission Date: 20190417
  Serious: Yes (Congenital Anomaly, Other)
  Sender: FDA-Public Use
  Company Number: FR-ABBVIE-16P-056-1579582-00

PATIENT
  Sex: Female

DRUGS (2)
  1. VALIUM [Suspect]
     Active Substance: DIAZEPAM
     Indication: MATERNAL EXPOSURE TIMING UNSPECIFIED
     Route: 064
  2. DEPAKINE CHRONO [Suspect]
     Active Substance: VALPROATE SODIUM
     Indication: MATERNAL EXPOSURE TIMING UNSPECIFIED
     Route: 064

REACTIONS (22)
  - Plagiocephaly [Unknown]
  - Tympanic membrane perforation [Unknown]
  - Congenital hand malformation [Unknown]
  - Delayed puberty [Recovered/Resolved]
  - Foetal exposure during pregnancy [Unknown]
  - Intellectual disability [Not Recovered/Not Resolved]
  - Bronchitis [Unknown]
  - Developmental delay [Not Recovered/Not Resolved]
  - Learning disorder [Unknown]
  - Foot deformity [Recovering/Resolving]
  - Strabismus [Unknown]
  - Cleft palate [Unknown]
  - Polydactyly [Unknown]
  - Myopia [Unknown]
  - Cognitive disorder [Unknown]
  - Ear infection [Unknown]
  - Psychomotor retardation [Not Recovered/Not Resolved]
  - Hypotonia [Unknown]
  - Dysmorphism [Unknown]
  - Poor sucking reflex [Unknown]
  - Congenital foot malformation [Unknown]
  - Language disorder [Unknown]

NARRATIVE: CASE EVENT DATE: 199603
